FAERS Safety Report 4991790-8 (Version None)
Quarter: 2006Q2

REPORT INFORMATION
  Report Type: 
  Country: None (occurrence: None)
  Receive Date: 20060504
  Receipt Date: 20060427
  Transmission Date: 20061013
  Serious: Yes (Hospitalization)
  Sender: FDA-Public Use
  Company Number: GB-AVENTIS-200614535GDDC

PATIENT
  Age: 18 Year
  Sex: Female

DRUGS (1)
  1. FLAGYL [Suspect]

REACTIONS (6)
  - ACTIVITIES OF DAILY LIVING IMPAIRED [None]
  - CONFUSIONAL STATE [None]
  - COORDINATION ABNORMAL [None]
  - DIFFICULTY IN WALKING [None]
  - HYPERVENTILATION [None]
  - MALAISE [None]
